FAERS Safety Report 7756998-7 (Version None)
Quarter: 2011Q3

REPORT INFORMATION
  Report Type: 
  Country: None (occurrence: None)
  Receive Date: 20110916
  Receipt Date: 20110916
  Transmission Date: 20111222
  Serious: Yes (Hospitalization)
  Sender: FDA-Public Use
  Company Number: None

PATIENT
  Age: 76 Year
  Sex: Male
  Weight: 86.6 kg

DRUGS (14)
  1. NIFEREX [Concomitant]
  2. ULTRAM [Concomitant]
  3. ITAMIN D [Concomitant]
  4. CENTRUM SILVER [Concomitant]
  5. ACETAMINOPHEN [Concomitant]
  6. BENICAR [Concomitant]
  7. AMIODARONE HCL [Concomitant]
  8. ASPIRIN [Concomitant]
  9. COREG [Concomitant]
  10. SIMVASTATIN [Concomitant]
  11. PRADAXA [Suspect]
     Indication: ATRIAL FLUTTER
     Dosage: 150 MG
     Route: 048
     Dates: start: 20110520, end: 20110612
  12. PRADAXA [Suspect]
     Indication: ATRIAL FIBRILLATION
     Dosage: 150 MG
     Route: 048
     Dates: start: 20110520, end: 20110612
  13. HYDROCHLOROTHIAZIDE [Concomitant]
  14. PREVACID [Concomitant]

REACTIONS (4)
  - ORTHOSTATIC HYPOTENSION [None]
  - GASTROINTESTINAL HAEMORRHAGE [None]
  - DIZZINESS [None]
  - HAEMOGLOBIN DECREASED [None]
